FAERS Safety Report 23375357 (Version 5)
Quarter: 2024Q3

REPORT INFORMATION
  Report Type: Spontaneous
  Country: CO (occurrence: CO)
  Receive Date: 20240106
  Receipt Date: 20240716
  Transmission Date: 20241016
  Serious: Yes (Life-Threatening, Hospitalization, Other)
  Sender: SANDOZ
  Company Number: CO-002147023-NVSC2019CO072650

PATIENT
  Age: 68 Year
  Sex: Female
  Weight: 60 kg

DRUGS (21)
  1. RUXOLITINIB [Suspect]
     Active Substance: RUXOLITINIB
     Dosage: 10 MG, (DAILY)
     Route: 048
  2. RUXOLITINIB [Suspect]
     Active Substance: RUXOLITINIB
     Dosage: 15 MG, QD
     Route: 048
     Dates: start: 20180517, end: 202307
  3. RUXOLITINIB [Suspect]
     Active Substance: RUXOLITINIB
     Dosage: 15 MG (DAILY)
     Route: 048
  4. RUXOLITINIB [Suspect]
     Active Substance: RUXOLITINIB
     Dosage: 2 DOSAGE FORM, QD  (2 TABLET DAILY OF 10 MG)
     Route: 065
  5. RUXOLITINIB [Suspect]
     Active Substance: RUXOLITINIB
     Dosage: 20 MG, QD (2 TABLETS OF 10 MG)
     Route: 065
  6. RUXOLITINIB [Suspect]
     Active Substance: RUXOLITINIB
     Dosage: 20 MG, QD (5 YEARS AGO)
     Route: 065
  7. RUXOLITINIB [Suspect]
     Active Substance: RUXOLITINIB
     Indication: Polycythaemia vera
     Dosage: 20 MG, Q12H
     Route: 048
     Dates: start: 20180517
  8. RUXOLITINIB [Suspect]
     Active Substance: RUXOLITINIB
     Dosage: 20 MG (DAILY)
     Route: 048
  9. RUXOLITINIB [Suspect]
     Active Substance: RUXOLITINIB
     Dosage: 3 DOSAGE FORM, QD
     Route: 065
  10. RUXOLITINIB [Suspect]
     Active Substance: RUXOLITINIB
     Dosage: 30 MG (3 TABLETS OF 10 MG)
     Route: 065
  11. RUXOLITINIB [Suspect]
     Active Substance: RUXOLITINIB
     Dosage: 30 MG, QD (3 TABLETS OF 10 MG)
     Route: 048
  12. RUXOLITINIB [Suspect]
     Active Substance: RUXOLITINIB
     Dosage: 30 MG (DAILY)
     Route: 048
  13. RUXOLITINIB [Suspect]
     Active Substance: RUXOLITINIB
     Dosage: 20 MG , BID, (2 TABLETS) ONE IN THE MORNING AND THE OTHER ONE AT NIGHT
     Route: 065
  14. RUXOLITINIB [Suspect]
     Active Substance: RUXOLITINIB
     Dosage: 40 MG, (2 OF 20 MG) QD
     Route: 048
     Dates: start: 202307
  15. RUXOLITINIB [Suspect]
     Active Substance: RUXOLITINIB
     Dosage: 40 MG, QD (4 TABLETS OF 10 MG)
     Route: 065
  16. RUXOLITINIB [Suspect]
     Active Substance: RUXOLITINIB
     Dosage: 40 MG, QD, (40 MG (4 X 10 MG)
     Route: 048
  17. RUXOLITINIB [Suspect]
     Active Substance: RUXOLITINIB
     Dosage: UNK UNK, Q12H (2 TABLETS)
     Route: 048
  18. LOSARTAN [Suspect]
     Active Substance: LOSARTAN
     Indication: Hypertension
     Dosage: 50 MG, QD
     Route: 048
     Dates: start: 2019
  19. TRAMADOL [Suspect]
     Active Substance: TRAMADOL\TRAMADOL HYDROCHLORIDE
     Indication: Product used for unknown indication
     Dosage: UNK
     Route: 065
  20. ASPIRIN [Concomitant]
     Active Substance: ASPIRIN
     Indication: Thrombosis
     Dosage: UNK, QD
     Route: 048
  21. HYDROXYUREA [Concomitant]
     Active Substance: HYDROXYUREA
     Indication: Platelet disorder
     Dosage: UNK
     Route: 065

REACTIONS (32)
  - Platelet count decreased [Unknown]
  - Insomnia [Unknown]
  - General physical health deterioration [Unknown]
  - Splenic infarction [Unknown]
  - Splenitis [Not Recovered/Not Resolved]
  - Decreased appetite [Unknown]
  - Gait disturbance [Unknown]
  - Pain [Recovering/Resolving]
  - Hypotension [Unknown]
  - Vomiting [Recovered/Resolved]
  - Nausea [Unknown]
  - Haemoglobin decreased [Unknown]
  - Abdominal pain upper [Recovered/Resolved]
  - Dizziness [Recovered/Resolved]
  - Tachycardia [Not Recovered/Not Resolved]
  - Platelet count increased [Unknown]
  - Blood pressure abnormal [Unknown]
  - Feeding disorder [Unknown]
  - Splenomegaly [Unknown]
  - Spleen disorder [Unknown]
  - Haemoglobin increased [Unknown]
  - Pain in extremity [Not Recovered/Not Resolved]
  - Varicose vein [Unknown]
  - Hypoaesthesia [Not Recovered/Not Resolved]
  - Muscle spasms [Not Recovered/Not Resolved]
  - Anaemia [Unknown]
  - Abdominal pain upper [Not Recovered/Not Resolved]
  - Rash macular [Unknown]
  - Malaise [Unknown]
  - Drug ineffective [Unknown]
  - Product prescribing error [Unknown]
  - Off label use [Unknown]

NARRATIVE: CASE EVENT DATE: 20200810
